FAERS Safety Report 13962514 (Version 2)
Quarter: 2017Q3

REPORT INFORMATION
  Report Type: Report from Study
  Country: US (occurrence: US)
  Receive Date: 20170913
  Receipt Date: 20170918
  Transmission Date: 20171128
  Serious: No
  Sender: FDA-Public Use
  Company Number: US-AMGEN-USASP2017138018

PATIENT
  Age: 44 Year
  Sex: Male

DRUGS (1)
  1. ENBREL [Suspect]
     Active Substance: ETANERCEPT
     Indication: PSORIATIC ARTHROPATHY
     Dosage: 50 MG, QWK
     Route: 065

REACTIONS (2)
  - Injection site pain [Unknown]
  - Accidental exposure to product [Unknown]

NARRATIVE: CASE EVENT DATE: 20170908
